FAERS Safety Report 6166924-2 (Version None)
Quarter: 2009Q2

REPORT INFORMATION
  Report Type: 
  Country: None (occurrence: None)
  Receive Date: 20090422
  Receipt Date: 20090408
  Transmission Date: 20091009
  Serious: Yes (Other)
  Sender: FDA-Public Use
  Company Number: 2009AL002182

PATIENT
  Age: 81 Year
  Sex: Female

DRUGS (9)
  1. PROPRANOLOL HCL [Suspect]
     Indication: ANXIETY
     Dosage: 40 MG; PO
     Route: 048
     Dates: start: 20090312
  2. ZOPICLONE [Concomitant]
  3. RAMIPRIL [Concomitant]
  4. FUROSEMIDE [Concomitant]
  5. MIRTAZAPINE [Concomitant]
  6. BUPRENORPHINE HCL [Concomitant]
  7. OMEPRAZOLE [Concomitant]
  8. BISOPROLOL FUMARATE [Concomitant]
  9. ZOPICLONE [Concomitant]

REACTIONS (4)
  - DYSPNOEA [None]
  - ERYTHEMA [None]
  - PRURITUS [None]
  - SWELLING FACE [None]
